FAERS Safety Report 10067020 (Version 2)
Quarter: 2014Q2

REPORT INFORMATION
  Report Type: Report from Study
  Country: CH (occurrence: CH)
  Receive Date: 20140409
  Receipt Date: 20140409
  Transmission Date: 20141212
  Serious: Yes (Other)
  Sender: FDA-Public Use
  Company Number: CH-ROCHE-1332876

PATIENT
  Age: 61 Year
  Sex: Female
  Weight: 54 kg

DRUGS (6)
  1. ACTEMRA [Suspect]
     Indication: RHEUMATOID ARTHRITIS
     Route: 041
     Dates: start: 20131207, end: 20131207
  2. ACTEMRA [Suspect]
     Route: 041
     Dates: start: 20140110
  3. ARAVA [Concomitant]
     Indication: RHEUMATOID ARTHRITIS
     Route: 048
  4. PREDNISONE [Concomitant]
     Indication: RHEUMATOID ARTHRITIS
     Route: 048
  5. ATACAND [Concomitant]
     Route: 048
  6. CALCIMAGON-D3 [Concomitant]
     Route: 048

REACTIONS (4)
  - Rheumatoid arthritis [Recovered/Resolved]
  - Joint swelling [Recovered/Resolved]
  - Arthralgia [Recovered/Resolved]
  - Drug ineffective [Unknown]
